FAERS Safety Report 4616553-4 (Version None)
Quarter: 2005Q1

REPORT INFORMATION
  Report Type: 
  Country: None (occurrence: None)
  Receive Date: 20050318
  Receipt Date: 20050302
  Transmission Date: 20050727
  Serious: Yes (Hospitalization)
  Sender: FDA-Public Use
  Company Number: ENTC2005-0062

PATIENT
  Age: 76 Year
  Sex: Male

DRUGS (1)
  1. STALEVO 100 [Suspect]
     Indication: PARKINSON'S DISEASE
     Dosage: TID,ORAL
     Route: 048
     Dates: start: 20041222

REACTIONS (3)
  - FALL [None]
  - HYPOAESTHESIA [None]
  - TREMOR [None]
